FAERS Safety Report 5021972-0 (Version None)
Quarter: 2006Q2

REPORT INFORMATION
  Report Type: 
  Country: None (occurrence: None)
  Receive Date: 20060609
  Receipt Date: 20060605
  Transmission Date: 20061013
  Serious: Yes (Hospitalization)
  Sender: FDA-Public Use
  Company Number: CZ-JNJFOC-20060601280

PATIENT
  Age: 39 Year
  Sex: Female

DRUGS (3)
  1. LOPERAMIDE [Suspect]
     Indication: DRUG USE FOR UNKNOWN INDICATION
  2. HYPERICUM [Interacting]
     Indication: DRUG USE FOR UNKNOWN INDICATION
  3. VALERIANA OFFICINALIS [Interacting]
     Indication: DRUG USE FOR UNKNOWN INDICATION
     Route: 048

REACTIONS (3)
  - DELIRIUM [None]
  - DISORIENTATION [None]
  - DRUG INTERACTION [None]
